FAERS Safety Report 8568067 (Version 2)
Quarter: 2014Q1

REPORT INFORMATION
  Report Type: Spontaneous
  Country: US (occurrence: US)
  Receive Date: 20120518
  Receipt Date: 20140225
  Transmission Date: 20141002
  Serious: No
  Sender: FDA-Public Use
  Company Number: US-BIOGENIDEC-2012BI017013

PATIENT
  Age: 62 Year
  Sex: Male

DRUGS (5)
  1. AVONEX [Suspect]
     Indication: MULTIPLE SCLEROSIS
     Route: 030
     Dates: start: 20071001, end: 20120531
  2. AVONEX [Suspect]
     Indication: MULTIPLE SCLEROSIS
     Route: 030
     Dates: start: 20120607
  3. AMPYRA [Concomitant]
     Indication: GAIT DISTURBANCE
     Dates: start: 2009, end: 201109
  4. ALEVE [Concomitant]
     Indication: PREMEDICATION
     Dates: start: 2007
  5. ARBACLOFEN [Concomitant]
     Indication: MUSCLE SPASTICITY
     Dates: start: 201202

REACTIONS (6)
  - Gait disturbance [Recovered/Resolved]
  - Frustration [Recovered/Resolved]
  - Influenza like illness [Recovered/Resolved]
  - Muscle spasticity [Recovered/Resolved]
  - Fatigue [Recovered/Resolved]
  - Body temperature increased [Recovered/Resolved]
